FAERS Safety Report 4337808-7 (Version None)
Quarter: 2004Q2

REPORT INFORMATION
  Report Type: 
  Country: None (occurrence: None)
  Receive Date: 20040406
  Receipt Date: 20030710
  Transmission Date: 20050107
  Serious: No
  Sender: FDA-Public Use
  Company Number: APP200301683 (0)

PATIENT
  Age: 57 Year
  Sex: Female
  Weight: 58.9676 kg

DRUGS (1)
  1. HEPARIN SODIUM INJECTION [Suspect]
     Indication: AORTIC ANEURYSM
     Dosage: UNK (50000 USP UNITS), INJECTION
     Dates: start: 20030710, end: 20030710

REACTIONS (1)
  - DRUG INEFFECTIVE [None]
